FAERS Safety Report 25771533 (Version 2)
Quarter: 2025Q4

REPORT INFORMATION
  Report Type: Spontaneous
  Country: US (occurrence: US)
  Receive Date: 20250908
  Receipt Date: 20251110
  Transmission Date: 20260118
  Serious: Yes (Hospitalization, Other)
  Sender: BIOVITRUM
  Company Number: US-BIOVITRUM-2025-US-012014

PATIENT
  Age: 89 Year
  Sex: Male

DRUGS (3)
  1. DOPTELET [Suspect]
     Active Substance: AVATROMBOPAG MALEATE
     Indication: Chronic lymphocytic leukaemia
     Dosage: DAILY
     Route: 048
  2. DOPTELET [Suspect]
     Active Substance: AVATROMBOPAG MALEATE
     Indication: Immune thrombocytopenia
  3. JAYPIRCA [Concomitant]
     Active Substance: PIRTOBRUTINIB
     Indication: Product used for unknown indication

REACTIONS (3)
  - Feeling abnormal [Unknown]
  - Unevaluable event [Unknown]
  - Leukaemia [Unknown]
